FAERS Safety Report 5365522-8 (Version None)
Quarter: 2007Q2

REPORT INFORMATION
  Report Type: 
  Country: None (occurrence: None)
  Receive Date: 20070621
  Receipt Date: 20070618
  Transmission Date: 20071010
  Serious: Yes (Other)
  Sender: FDA-Public Use
  Company Number: A0657200A

PATIENT
  Age: 65 Year
  Sex: Male

DRUGS (4)
  1. AVODART [Suspect]
     Indication: BENIGN PROSTATIC HYPERPLASIA
     Dosage: .5MG PER DAY
     Route: 048
     Dates: start: 20070508
  2. FLOMAX [Concomitant]
  3. LEVAQUIN [Concomitant]
  4. BENECOL [Concomitant]

REACTIONS (2)
  - BLEEDING TIME PROLONGED [None]
  - CONTUSION [None]
